FAERS Safety Report 10082382 (Version 1)
Quarter: 2014Q2

REPORT INFORMATION
  Report Type: Spontaneous
  Country: JP (occurrence: JP)
  Receive Date: 20140416
  Receipt Date: 20140416
  Transmission Date: 20141212
  Serious: Yes (Hospitalization)
  Sender: FDA-Public Use
  Company Number: PHHY2014JP045228

PATIENT
  Age: 77 Year
  Sex: Female

DRUGS (1)
  1. VOLTAREN [Suspect]
     Dosage: UNK UKN, UNK
     Route: 054

REACTIONS (4)
  - Hypoaesthesia [Recovered/Resolved]
  - Micturition disorder [Recovered/Resolved]
  - Gastrointestinal motility disorder [Recovered/Resolved]
  - Anorectal discomfort [Recovered/Resolved]
